FAERS Safety Report 11082101 (Version 1)
Quarter: 2015Q2

REPORT INFORMATION
  Report Type: Spontaneous
  Country: US (occurrence: US)
  Receive Date: 20150501
  Receipt Date: 20150501
  Transmission Date: 20150821
  Serious: No
  Sender: FDA-Public Use
  Company Number: US-GLAXOSMITHKLINE-US2015GSK059124

PATIENT
  Sex: Male

DRUGS (9)
  1. OXYCODONE [Concomitant]
     Active Substance: OXYCODONE
  2. MONTELUKAST [Concomitant]
     Active Substance: MONTELUKAST SODIUM
  3. AMLODIPINE [Concomitant]
     Active Substance: AMLODIPINE BESYLATE
  4. ZOLPIDEM [Concomitant]
     Active Substance: ZOLPIDEM\ZOLPIDEM TARTRATE
  5. BETAMETHASONE AND CLOTRIMAZOLE [Concomitant]
  6. SERTRALINE [Concomitant]
     Active Substance: SERTRALINE HYDROCHLORIDE
  7. VOTRIENT [Suspect]
     Active Substance: PAZOPANIB HYDROCHLORIDE
     Indication: RENAL CANCER
     Dosage: 400 MG, QD
     Route: 048
     Dates: start: 20150227
  8. VASOLEX [Concomitant]
     Active Substance: BALSAM PERU\CASTOR OIL\TRYPSIN
  9. FLUTICASONE [Concomitant]
     Active Substance: FLUTICASONE\FLUTICASONE PROPIONATE

REACTIONS (1)
  - Drug ineffective [Recovered/Resolved]
